FAERS Safety Report 15356874 (Version 2)
Quarter: 2018Q4

REPORT INFORMATION
  Report Type: Spontaneous
  Country: US (occurrence: US)
  Receive Date: 20180906
  Receipt Date: 20181102
  Transmission Date: 20190204
  Serious: No
  Sender: FDA-Public Use
  Company Number: US-SA-2018SA248939

PATIENT
  Sex: Female

DRUGS (1)
  1. AUBAGIO [Suspect]
     Active Substance: TERIFLUNOMIDE
     Dosage: UNK
     Route: 048
     Dates: start: 201612, end: 201706

REACTIONS (4)
  - Urinary incontinence [Unknown]
  - Alopecia [Unknown]
  - Diarrhoea [Unknown]
  - Paraesthesia [Unknown]
